FAERS Safety Report 4515846-9 (Version None)
Quarter: 2005Q1

REPORT INFORMATION
  Report Type: 
  Country: None (occurrence: None)
  Receive Date: 20041001
  Receipt Date: 20040428
  Transmission Date: 20050727
  Serious: Yes (Hospitalization)
  Sender: FDA-Public Use
  Company Number: TPA2004A00541

PATIENT
  Age: 67 Year
  Sex: Female

DRUGS (2)
  1. ACTOS [Suspect]
     Indication: DIABETES MELLITUS
     Dosage: PER ORAL
     Route: 048
  2. GLYBURIDE [Suspect]
     Indication: DIABETES MELLITUS

REACTIONS (1)
  - DIABETES MELLITUS INADEQUATE CONTROL [None]
